FAERS Safety Report 9784814 (Version 1)
Quarter: 2013Q4

REPORT INFORMATION
  Report Type: Report from Study
  Country: SK (occurrence: SK)
  Receive Date: 20131227
  Receipt Date: 20131227
  Transmission Date: 20140711
  Serious: Yes (Hospitalization)
  Sender: FDA-Public Use
  Company Number: SK-BIOGENIDEC-2013BI122791

PATIENT
  Age: 27 Year
  Sex: Male

DRUGS (3)
  1. AVONEX [Suspect]
     Indication: MULTIPLE SCLEROSIS
     Route: 030
     Dates: start: 20110930
  2. TEBOKAN [Concomitant]
     Indication: VASODILATATION
     Route: 048
  3. NEUROMULTIVIT [Concomitant]
     Indication: POLYNEUROPATHY
     Route: 048

REACTIONS (1)
  - Deafness neurosensory [Not Recovered/Not Resolved]
